FAERS Safety Report 5957450-1 (Version None)
Quarter: 2008Q4

REPORT INFORMATION
  Report Type: 
  Country: None (occurrence: None)
  Receive Date: 20081114
  Receipt Date: 20081104
  Transmission Date: 20090506
  Serious: Yes (Hospitalization)
  Sender: FDA-Public Use
  Company Number: 231453K08USA

PATIENT
  Age: 50 Year
  Sex: Female

DRUGS (6)
  1. REBIF [Suspect]
     Indication: MULTIPLE SCLEROSIS
     Dosage: 33 MCG, 3 IN 1 WEEKS, SUBCUTANEOUS
     Route: 058
     Dates: start: 20050926
  2. BACLOFEN [Concomitant]
  3. MIRAPEX [Concomitant]
  4. ZOLOFT [Concomitant]
  5. DICLOFENAC (DICLOFENAC /00372301/) [Concomitant]
  6. BUTALBITAL-APAP-CAFFEINE (AXOTAL /00727001/) [Concomitant]

REACTIONS (2)
  - APPENDICITIS PERFORATED [None]
  - POSTOPERATIVE FEVER [None]
